FAERS Safety Report 9976286 (Version 1)
Quarter: 2014Q1

REPORT INFORMATION
  Report Type: Report from Study
  Country: US (occurrence: US)
  Receive Date: 20140306
  Receipt Date: 20140306
  Transmission Date: 20141002
  Serious: Yes (Hospitalization)
  Sender: FDA-Public Use
  Company Number: US-BMSGILMSD-2014-0095749

PATIENT
  Age: 61 Year
  Sex: Male

DRUGS (1)
  1. EFAVIRENZ/EMTRICITABINE/TENOFOVIR DISOPROXIL FUMARATE [Suspect]
     Indication: HIV INFECTION
     Dosage: 1100 MG, UNK
     Route: 065

REACTIONS (3)
  - Fall [Recovered/Resolved]
  - Nerve compression [Unknown]
  - Immobile [Recovered/Resolved]
